FAERS Safety Report 9444576 (Version 2)
Quarter: 2013Q3

REPORT INFORMATION
  Report Type: Spontaneous
  Country: US (occurrence: US)
  Receive Date: 20130807
  Receipt Date: 20130809
  Transmission Date: 20140515
  Serious: No
  Sender: FDA-Public Use
  Company Number: US-PFIZER INC-2013225635

PATIENT
  Age: 68 Year
  Sex: Male

DRUGS (2)
  1. FLAGYL [Suspect]
     Indication: ANTIBIOTIC THERAPY
     Dosage: 500 MG, 2X/DAY
     Dates: start: 20130717
  2. GATTEX [Suspect]
     Indication: SHORT-BOWEL SYNDROME
     Dosage: 0.375 ML, 1X/DAY
     Route: 058
     Dates: start: 20130710, end: 20130719

REACTIONS (1)
  - Diarrhoea [Not Recovered/Not Resolved]
